FAERS Safety Report 16315461 (Version 1)
Quarter: 2019Q2

REPORT INFORMATION
  Report Type: Report from Study
  Country: US (occurrence: US)
  Receive Date: 20190515
  Receipt Date: 20190515
  Transmission Date: 20190711
  Serious: Yes (Other)
  Sender: FDA-Public Use
  Company Number: US-BAYER-2019-091636

PATIENT
  Age: 73 Year
  Sex: Male

DRUGS (1)
  1. STIVARGA [Suspect]
     Active Substance: REGORAFENIB
     Indication: SOFT TISSUE SARCOMA
     Dosage: 80 MG, QD 21 DAYS OFF 7 DAYS ORAL
     Route: 048
     Dates: start: 20190105

REACTIONS (6)
  - Off label use [None]
  - Haemoglobin decreased [Unknown]
  - Gait disturbance [Unknown]
  - Palmar-plantar erythrodysaesthesia syndrome [Unknown]
  - Product use in unapproved indication [None]
  - Decreased appetite [Unknown]
